FAERS Safety Report 5253141-3 (Version None)
Quarter: 2007Q1

REPORT INFORMATION
  Report Type: 
  Country: None (occurrence: None)
  Receive Date: 20070301
  Receipt Date: 20070227
  Transmission Date: 20070707
  Serious: Yes (Other)
  Sender: FDA-Public Use
  Company Number: JP-JPN-A200700651

PATIENT
  Age: 36 Year
  Sex: Male

DRUGS (11)
  1. PAXIL [Suspect]
     Indication: DEPRESSION
     Dosage: 40MG PER DAY
     Route: 048
     Dates: start: 20060624
  2. TAMIFLU [Suspect]
     Route: 048
     Dates: start: 20070215
  3. SOLANAX [Concomitant]
     Route: 048
  4. RIVOTRIL [Concomitant]
     Route: 048
  5. BIPERIDEN HYDROCHLORIDE TAB [Concomitant]
     Route: 065
  6. LENDORMIN [Concomitant]
     Route: 048
  7. CHINESE MEDICINE [Concomitant]
     Route: 048
  8. CHINESE MEDICINE [Concomitant]
     Route: 048
  9. CLARITHROMYCIN [Concomitant]
     Route: 048
  10. MUCOSOLVAN [Concomitant]
     Route: 048
  11. CHINESE MEDICINE [Concomitant]
     Route: 065

REACTIONS (5)
  - DRUG WITHDRAWAL SYNDROME [None]
  - HALLUCINATION [None]
  - HALLUCINATION, AUDITORY [None]
  - HALLUCINATION, VISUAL [None]
  - SLEEP DISORDER [None]
